FAERS Safety Report 5633931-5 (Version None)
Quarter: 2008Q1

REPORT INFORMATION
  Report Type: 
  Country: None (occurrence: None)
  Receive Date: 20080219
  Receipt Date: 20080204
  Transmission Date: 20080703
  Serious: Yes (Death, Life-Threatening, Hospitalization, Other)
  Sender: FDA-Public Use
  Company Number: ADE2008-0130

PATIENT
  Age: 25 Year
  Sex: Male

DRUGS (11)
  1. CIPROFLOXACIN [Suspect]
     Indication: CHEST DISCOMFORT
  2. CLARITHROMYCIN [Suspect]
     Indication: CHEST DISCOMFORT
  3. COMBIVIR [Suspect]
     Indication: HIV INFECTION
  4. CO-TRIMOXAZOLE [Suspect]
     Indication: PNEUMOCYSTIS JIROVECI PNEUMONIA
  5. EFAVIRENZ [Suspect]
     Indication: HIV INFECTION
  6. IBUPROFEN [Suspect]
     Indication: PAIN IN EXTREMITY
  7. LAMIVUDINE [Suspect]
     Indication: HIV INFECTION
  8. NEVIRAPINE [Suspect]
     Indication: HIV INFECTION
  9. TENOFOVIR DISOPROXIL [Suspect]
     Indication: HIV INFECTION
  10. BACTRIM [Concomitant]
  11. LOPERAMIDE HCL [Concomitant]

REACTIONS (9)
  - AGITATION [None]
  - CHOLESTASIS [None]
  - CONFUSIONAL STATE [None]
  - COUGH [None]
  - HAEMOGLOBIN DECREASED [None]
  - PAIN IN EXTREMITY [None]
  - SEPSIS [None]
  - VANISHING BILE DUCT SYNDROME [None]
  - VOMITING [None]
